FAERS Safety Report 16461543 (Version 1)
Quarter: 2019Q2

REPORT INFORMATION
  Report Type: Spontaneous
  Country: CN (occurrence: CN)
  Receive Date: 20190621
  Receipt Date: 20190621
  Transmission Date: 20190711
  Serious: Yes (Other)
  Sender: FDA-Public Use
  Company Number: CN-ROCHE-2339062

PATIENT
  Age: 59 Year
  Sex: Female

DRUGS (27)
  1. CISPLATIN. [Concomitant]
     Active Substance: CISPLATIN
     Indication: DIFFUSE LARGE B-CELL LYMPHOMA
     Dosage: DAY1AND DAY3
     Route: 065
     Dates: start: 20180224
  2. LINEZOLID. [Concomitant]
     Active Substance: LINEZOLID
     Route: 065
     Dates: start: 20181105
  3. CYCLOPHOSPHAMIDE. [Concomitant]
     Active Substance: CYCLOPHOSPHAMIDE
     Dosage: DAY1
     Route: 065
     Dates: start: 20190205
  4. LENALIDOMIDE [Concomitant]
     Active Substance: LENALIDOMIDE
     Indication: DIFFUSE LARGE B-CELL LYMPHOMA
     Route: 048
     Dates: start: 20180918
  5. IBRUTINIB [Concomitant]
     Active Substance: IBRUTINIB
     Indication: DIFFUSE LARGE B-CELL LYMPHOMA
     Route: 048
     Dates: start: 20181023
  6. IBRUTINIB [Concomitant]
     Active Substance: IBRUTINIB
     Route: 065
  7. CYCLOPHOSPHAMIDE. [Concomitant]
     Active Substance: CYCLOPHOSPHAMIDE
     Indication: DIFFUSE LARGE B-CELL LYMPHOMA
     Dosage: DAY1
     Route: 065
     Dates: start: 20170519
  8. MABTHERA [Suspect]
     Active Substance: RITUXIMAB
     Route: 065
     Dates: start: 20170615
  9. ACTEMRA [Suspect]
     Active Substance: TOCILIZUMAB
     Indication: DIFFUSE LARGE B-CELL LYMPHOMA
     Route: 042
     Dates: start: 20180513
  10. GEMCITABINE [Concomitant]
     Active Substance: GEMCITABINE\GEMCITABINE HYDROCHLORIDE
     Indication: DIFFUSE LARGE B-CELL LYMPHOMA
     Dosage: DAY1
     Route: 065
     Dates: start: 20180224
  11. DEXAMETHASONE. [Concomitant]
     Active Substance: DEXAMETHASONE
     Dosage: DAY1 TO 5
     Route: 065
     Dates: start: 20180918
  12. VINCRISTINE [Concomitant]
     Active Substance: VINCRISTINE
     Route: 065
     Dates: start: 20180125
  13. ETOPOSIDE. [Concomitant]
     Active Substance: ETOPOSIDE
     Dosage: DAY1-3
     Route: 065
     Dates: start: 20180918
  14. CYCLOPHOSPHAMIDE. [Concomitant]
     Active Substance: CYCLOPHOSPHAMIDE
     Dosage: DAY5
     Route: 065
     Dates: start: 20180125
  15. EPIRUBICIN [Concomitant]
     Active Substance: EPIRUBICIN
     Indication: DIFFUSE LARGE B-CELL LYMPHOMA
     Dosage: DAY1
     Route: 065
     Dates: start: 20170519
  16. VINCRISTINE [Concomitant]
     Active Substance: VINCRISTINE
     Indication: DIFFUSE LARGE B-CELL LYMPHOMA
     Dosage: DAY1
     Route: 065
     Dates: start: 20170519
  17. VINCRISTINE [Concomitant]
     Active Substance: VINCRISTINE
     Dosage: DAY1
     Route: 065
     Dates: start: 20170907
  18. PREDNISOLONE. [Concomitant]
     Active Substance: PREDNISOLONE
     Dosage: DAY1-5
     Route: 065
     Dates: start: 20180125
  19. ETOPOSIDE. [Concomitant]
     Active Substance: ETOPOSIDE
     Indication: DIFFUSE LARGE B-CELL LYMPHOMA
     Route: 065
     Dates: start: 20180125
  20. HUMAN IMMUNOGLOBULIN [Concomitant]
     Active Substance: HUMAN IMMUNOGLOBULIN G
     Indication: DIFFUSE LARGE B-CELL LYMPHOMA
     Route: 065
     Dates: start: 20170523
  21. METHOTREXATE. [Concomitant]
     Active Substance: METHOTREXATE
     Indication: DIFFUSE LARGE B-CELL LYMPHOMA
     Dosage: DAY1
     Route: 065
  22. MABTHERA [Suspect]
     Active Substance: RITUXIMAB
     Indication: DIFFUSE LARGE B-CELL LYMPHOMA
     Route: 065
     Dates: start: 20170519
  23. PREDNISOLONE. [Concomitant]
     Active Substance: PREDNISOLONE
     Indication: DIFFUSE LARGE B-CELL LYMPHOMA
     Dosage: DAY1-5
     Route: 065
     Dates: start: 20170519
  24. DEXAMETHASONE. [Concomitant]
     Active Substance: DEXAMETHASONE
     Indication: DIFFUSE LARGE B-CELL LYMPHOMA
     Dosage: DAY1 TO 4
     Route: 065
     Dates: start: 20180224
  25. FLUDARABINE [Concomitant]
     Active Substance: FLUDARABINE PHOSPHATE
     Indication: DIFFUSE LARGE B-CELL LYMPHOMA
     Dosage: DAY1 TO DAY3
     Route: 065
     Dates: start: 20170502
  26. ETIMICIN [Concomitant]
     Active Substance: ETIMICIN SULFATE
     Route: 065
     Dates: start: 20181105
  27. CASPOFUNGIN [Concomitant]
     Active Substance: CASPOFUNGIN
     Route: 065
     Dates: start: 20181107

REACTIONS (13)
  - Cholecystitis [Unknown]
  - Headache [Unknown]
  - Bone marrow failure [Unknown]
  - Gingivitis [Unknown]
  - Chills [Unknown]
  - Splenomegaly [Unknown]
  - Sinusitis [Unknown]
  - Haematuria [Unknown]
  - Pelvic fluid collection [Unknown]
  - Spinal disorder [Unknown]
  - Pyrexia [Unknown]
  - Cholelithiasis [Unknown]
  - Lung neoplasm [Unknown]

NARRATIVE: CASE EVENT DATE: 20170519
